FAERS Safety Report 7956990-3 (Version None)
Quarter: 2011Q4

REPORT INFORMATION
  Report Type: 
  Country: None (occurrence: None)
  Receive Date: 20111205
  Receipt Date: 20111205
  Transmission Date: 20120403
  Serious: Yes (Other)
  Sender: FDA-Public Use
  Company Number: None

PATIENT
  Age: 70 Year
  Sex: Male
  Weight: 88.45 kg

DRUGS (1)
  1. CLINDAMYCIN [Suspect]
     Indication: DENTAL DISORDER PROPHYLAXIS
     Dosage: 1
     Route: 004
     Dates: start: 20111129, end: 20111230

REACTIONS (2)
  - STOMATITIS [None]
  - GLOSSITIS [None]
